FAERS Safety Report 23167812 (Version 1)
Quarter: 2023Q4

REPORT INFORMATION
  Report Type: Spontaneous
  Country: US (occurrence: US)
  Receive Date: 20231109
  Receipt Date: 20231109
  Transmission Date: 20240110
  Serious: No
  Sender: FDA-Public Use
  Company Number: US-BIOGEN-2023BI01234426

PATIENT
  Age: 58 Year
  Sex: Male

DRUGS (1)
  1. QALSODY [Suspect]
     Active Substance: TOFERSEN
     Indication: Product used for unknown indication
     Route: 050

REACTIONS (3)
  - Feeling of despair [Unknown]
  - Amyotrophic lateral sclerosis [Unknown]
  - Pain [Unknown]

NARRATIVE: CASE EVENT DATE: 20230101
